FAERS Safety Report 7585904-3 (Version None)
Quarter: 2011Q2

REPORT INFORMATION
  Report Type: 
  Country: None (occurrence: None)
  Receive Date: 20110603
  Receipt Date: 20110207
  Transmission Date: 20111010
  Serious: Yes (Other)
  Sender: FDA-Public Use
  Company Number: 201101035

PATIENT
  Age: 61 Year
  Sex: Male

DRUGS (3)
  1. MULTIVITAMIN [Concomitant]
  2. OSTEO BIO-FLEX (GLUCOSAMINE HYDROCHLORIDE) [Concomitant]
  3. XIAFLEX [Suspect]
     Indication: DUPUYTREN'S CONTRACTURE
     Dosage: 1 IN 1 D, INTRALESIONAL
     Route: 026
     Dates: start: 20101220, end: 20101220

REACTIONS (1)
  - TENDON RUPTURE [None]
